FAERS Safety Report 21177383 (Version 1)
Quarter: 2022Q3

REPORT INFORMATION
  Report Type: Spontaneous
  Country: US (occurrence: None)
  Receive Date: 20220804
  Receipt Date: 20220804
  Transmission Date: 20221026
  Serious: Yes (Life-Threatening, Hospitalization, Other)
  Sender: FDA-Public Use
  Company Number: None

PATIENT
  Age: 77 Year
  Sex: Male
  Weight: 86.4 kg

DRUGS (2)
  1. IVERMECTIN [Suspect]
     Active Substance: IVERMECTIN
     Indication: Self-medication
     Route: 048
  2. COSMETICS [Suspect]
     Active Substance: COSMETICS

REACTIONS (6)
  - Acute respiratory failure [None]
  - Acute kidney injury [None]
  - Rhabdomyolysis [None]
  - Encephalopathy [None]
  - COVID-19 [None]
  - Dehydration [None]

NARRATIVE: CASE EVENT DATE: 20220804
